FAERS Safety Report 12719289 (Version 2)
Quarter: 2016Q3

REPORT INFORMATION
  Report Type: Spontaneous
  Country: US (occurrence: US)
  Receive Date: 20160907
  Receipt Date: 20160927
  Transmission Date: 20161109
  Serious: Yes (Other)
  Sender: FDA-Public Use
  Company Number: US-TEVA-690312USA

PATIENT
  Age: 46 Year
  Sex: Female
  Weight: 80.81 kg

DRUGS (2)
  1. AMIKACIN [Suspect]
     Active Substance: AMIKACIN
     Indication: TUBERCULOSIS
     Dosage: 250 MG/ML
     Dates: start: 201603, end: 201604
  2. GABAPENTIN. [Concomitant]
     Active Substance: GABAPENTIN
     Indication: PAIN

REACTIONS (9)
  - Neuropathy peripheral [Unknown]
  - Abasia [Unknown]
  - Pain [Unknown]
  - Insomnia [Unknown]
  - Vein disorder [Unknown]
  - Pain in extremity [Unknown]
  - Activities of daily living impaired [Unknown]
  - Hypoaesthesia [Unknown]
  - Burning sensation [Unknown]

NARRATIVE: CASE EVENT DATE: 201603
